FAERS Safety Report 9461360 (Version 1)
Quarter: 2013Q3

REPORT INFORMATION
  Report Type: Spontaneous
  Country: US (occurrence: None)
  Receive Date: 20130814
  Receipt Date: 20130814
  Transmission Date: 20140515
  Serious: No
  Sender: FDA-Public Use
  Company Number: None

PATIENT
  Age: 15 Year
  Sex: Female
  Weight: 48.08 kg

DRUGS (1)
  1. CITALOPRAM HBR 20MG TORRENT PHARMA [Suspect]
     Indication: DEPRESSION
     Dosage: 20 MG 1 PILL @ BEDTIME BY MOUTH
     Route: 048
     Dates: start: 20130610

REACTIONS (1)
  - Bruxism [None]
